FAERS Safety Report 24640317 (Version 3)
Quarter: 2025Q1

REPORT INFORMATION
  Report Type: Report from Study
  Country: US (occurrence: US)
  Receive Date: 20241120
  Receipt Date: 20250306
  Transmission Date: 20250408
  Serious: Yes (Other)
  Sender: ACADIA PHARMACEUTICALS
  Company Number: US-ACADIA PHARMACEUTICALS INC.-ACA-2024-PIM-007045

PATIENT
  Sex: Male

DRUGS (13)
  1. NUPLAZID [Suspect]
     Active Substance: PIMAVANSERIN TARTRATE
     Indication: Parkinson^s disease psychosis
     Dosage: 34 MILLIGRAM, QD (AT BEDTIME)
     Route: 048
  2. XARELTO [Concomitant]
     Active Substance: RIVAROXABAN
  3. RIVASTIGMINE [Concomitant]
     Active Substance: RIVASTIGMINE
  4. RIVASTIGMINE [Concomitant]
     Active Substance: RIVASTIGMINE
  5. FAMOTIDINE [Concomitant]
     Active Substance: FAMOTIDINE
  6. ESCITALOPRAM [Concomitant]
     Active Substance: ESCITALOPRAM OXALATE
  7. ESCITALOPRAM [Concomitant]
     Active Substance: ESCITALOPRAM OXALATE
  8. OLANZAPINE [Concomitant]
     Active Substance: OLANZAPINE
  9. CLONAZEPAM [Concomitant]
     Active Substance: CLONAZEPAM
  10. SILODOSIN [Concomitant]
     Active Substance: SILODOSIN
  11. OMEPRAZOLE SODIUM [Concomitant]
     Active Substance: OMEPRAZOLE SODIUM
  12. MIRTAZAPINE [Concomitant]
     Active Substance: MIRTAZAPINE
  13. CARBIDOPA LEVODOPA [Concomitant]
     Active Substance: CARBIDOPA\LEVODOPA

REACTIONS (27)
  - Urinary retention [Unknown]
  - Prostatomegaly [Unknown]
  - Loss of personal independence in daily activities [Unknown]
  - Post procedural haemorrhage [Unknown]
  - Dysphagia [Not Recovered/Not Resolved]
  - Weight decreased [Unknown]
  - Dizziness [Unknown]
  - Delusion [Not Recovered/Not Resolved]
  - Feeling abnormal [Unknown]
  - Speech-language therapy [Unknown]
  - Physiotherapy [Unknown]
  - Depression [Unknown]
  - Decreased appetite [Unknown]
  - Dysuria [Unknown]
  - Bladder catheterisation [Unknown]
  - Anxiety [Not Recovered/Not Resolved]
  - Mobility decreased [Unknown]
  - Medical device change [Unknown]
  - Walking aid user [Not Recovered/Not Resolved]
  - Paranoia [Not Recovered/Not Resolved]
  - Speech disorder [Not Recovered/Not Resolved]
  - Abdominal pain upper [Not Recovered/Not Resolved]
  - Agitation [Not Recovered/Not Resolved]
  - Somnolence [Unknown]
  - Nausea [Not Recovered/Not Resolved]
  - Wrong technique in product usage process [Not Recovered/Not Resolved]
  - Product physical issue [Not Recovered/Not Resolved]
